FAERS Safety Report 4502701-3 (Version None)
Quarter: 2004Q4

REPORT INFORMATION
  Report Type: 
  Country: None (occurrence: None)
  Receive Date: 20041109
  Receipt Date: 20041021
  Transmission Date: 20050328
  Serious: Yes (Death)
  Sender: FDA-Public Use
  Company Number: 29647

PATIENT
  Age: 86 Year
  Sex: Female

DRUGS (1)
  1. FLUORESCITE 10% INJECTION (BATCH #: Z13246) [Suspect]
     Indication: ANGIOGRAM
     Dosage: 2 ML ONCE IV
     Route: 042
     Dates: start: 20041020, end: 20041020

REACTIONS (2)
  - CEREBRAL INFARCTION [None]
  - LOSS OF CONSCIOUSNESS [None]
